FAERS Safety Report 13084301 (Version 1)
Quarter: 2017Q1

REPORT INFORMATION
  Report Type: Spontaneous
  Country: US (occurrence: US)
  Receive Date: 20170102
  Receipt Date: 20170102
  Transmission Date: 20170428
  Serious: No
  Sender: FDA-Public Use
  Company Number: None

PATIENT
  Age: 62 Year
  Sex: Female

DRUGS (1)
  1. XANAX [Suspect]
     Active Substance: ALPRAZOLAM
     Route: 048

REACTIONS (6)
  - Nausea [None]
  - Product quality issue [None]
  - Product odour abnormal [None]
  - Headache [None]
  - Diarrhoea [None]
  - Product taste abnormal [None]
